FAERS Safety Report 6152560-0 (Version None)
Quarter: 2009Q2

REPORT INFORMATION
  Report Type: 
  Country: None (occurrence: None)
  Receive Date: 20090413
  Receipt Date: 20090407
  Transmission Date: 20091009
  Serious: Yes (Other)
  Sender: FDA-Public Use
  Company Number: ZA-BRISTOL-MYERS SQUIBB COMPANY-14579338

PATIENT
  Age: 17 Year
  Sex: Male

DRUGS (1)
  1. EFAVIRENZ [Suspect]

REACTIONS (2)
  - DRUG ABUSE [None]
  - DRUG ADMINISTRATION ERROR [None]
